FAERS Safety Report 6668743-7 (Version None)
Quarter: 2010Q2

REPORT INFORMATION
  Report Type: 
  Country: None (occurrence: None)
  Receive Date: 20100406
  Receipt Date: 20100323
  Transmission Date: 20101027
  Serious: Yes (Other)
  Sender: FDA-Public Use
  Company Number: US-ELI_LILLY_AND_COMPANY-US201001001731

PATIENT
  Sex: Female

DRUGS (7)
  1. EVISTA [Suspect]
     Indication: OSTEOPOROSIS
     Dosage: 60 MG, DAILY (1/D)
     Route: 065
     Dates: start: 19960101
  2. MAGNESIUM [Concomitant]
     Dosage: 800 MG, DAILY (1/D)
  3. PAXIL [Concomitant]
     Dosage: 30 MG, UNKNOWN
  4. CITRACAL + D [Concomitant]
  5. VITAMIN D [Concomitant]
     Dosage: 2000 MG, UNKNOWN
  6. VITAMIN B6 [Concomitant]
     Dosage: 50 MG, UNKNOWN
  7. FISH OIL [Concomitant]
     Dosage: 1200 MG, UNKNOWN

REACTIONS (6)
  - BLINDNESS [None]
  - CATARACT [None]
  - FEELING HOT [None]
  - FIBROMYALGIA [None]
  - PAIN IN EXTREMITY [None]
  - VISION BLURRED [None]
